FAERS Safety Report 15402837 (Version 1)
Quarter: 2018Q3

REPORT INFORMATION
  Report Type: Report from Study
  Country: AT (occurrence: AT)
  Receive Date: 20180919
  Receipt Date: 20180919
  Transmission Date: 20181010
  Serious: Yes (Hospitalization)
  Sender: FDA-Public Use
  Company Number: AT-PFIZER INC-2018373836

PATIENT
  Age: 74 Year
  Sex: Male
  Weight: 64 kg

DRUGS (32)
  1. KALIORAL [POTASSIUM CANRENOATE] [Concomitant]
     Indication: HYPOKALAEMIA
     Dosage: 1 UNK, AS NEEDED
     Route: 048
     Dates: start: 20180513
  2. BINOCRIT [Concomitant]
     Active Substance: ERYTHROPOIETIN
     Indication: ANAEMIA
     Dosage: 30 IU, WEEKLY
     Route: 058
     Dates: start: 20180315
  3. LEUCOVORIN [FOLINIC ACID] [Suspect]
     Active Substance: LEUCOVORIN
     Indication: COLORECTAL CANCER METASTATIC
     Dosage: 400 MG/M2, QCY (CYCLIC)
     Route: 042
     Dates: start: 20171229, end: 20171229
  4. FLUOROURACIL. [Suspect]
     Active Substance: FLUOROURACIL
     Indication: COLORECTAL CANCER METASTATIC
     Dosage: 400 MG/M2, QCY (CYCLIC)
     Route: 040
     Dates: start: 20171229, end: 20171229
  5. FLUOROURACIL. [Suspect]
     Active Substance: FLUOROURACIL
     Dosage: 400 MG/M2, QCY  (CYCLIC)
     Route: 040
     Dates: start: 20180720, end: 20180720
  6. HUMALOG MIX [Concomitant]
     Active Substance: INSULIN LISPRO
     Indication: HYPERGLYCAEMIA
     Dosage: 1 UNK, AS NEEDED
     Route: 058
     Dates: start: 20170717
  7. IRINOTECAN HCL [Suspect]
     Active Substance: IRINOTECAN HYDROCHLORIDE
     Indication: COLORECTAL CANCER METASTATIC
     Dosage: 180 MG/M2, CYCLIC
     Route: 042
     Dates: start: 20180720, end: 20180720
  8. FLUOROURACIL. [Suspect]
     Active Substance: FLUOROURACIL
     Dosage: 2400 MG/M2, QCY  (CYCLIC)
     Route: 042
     Dates: start: 20180720, end: 20180720
  9. LONQUEX [Concomitant]
     Active Substance: LIPEGFILGRASTIM
     Indication: PROPHYLAXIS
     Dosage: 6 MG, AS NEEDED
     Route: 058
     Dates: start: 20180514
  10. MAGNESIUM GLUCONICUM [Concomitant]
     Dosage: 10 ML, AS NEEDED
     Route: 042
     Dates: start: 20180802
  11. AKYNZEO [Concomitant]
     Active Substance: NETUPITANT\PALONOSETRON HYDROCHLORIDE
     Indication: PROPHYLAXIS
     Dosage: 300 MG, 1X/DAY
     Route: 048
     Dates: start: 20180118
  12. AFLIBERCEPT [Suspect]
     Active Substance: AFLIBERCEPT
     Dosage: 4 MG/KG, QCY (CYCLIC)
     Route: 042
     Dates: start: 20180720, end: 20180720
  13. ZINKOROTAT POS [Concomitant]
     Indication: PROPHYLAXIS
     Dosage: UNK UNK, UNK
     Route: 048
  14. CONCOR [Concomitant]
     Active Substance: BISOPROLOL FUMARATE
     Indication: PROPHYLAXIS
     Dosage: 125 MG, 1X/DAY
     Route: 048
     Dates: start: 20180607
  15. CIPROLEX [Concomitant]
     Active Substance: CIPROFLOXACIN HYDROCHLORIDE
     Indication: DEPRESSION
     Dosage: 10 MG, 1X/DAY
     Route: 048
     Dates: start: 20170623
  16. ENTEROBENE [Concomitant]
     Indication: PROPHYLAXIS
     Dosage: UNK UNK, PRN
     Route: 048
     Dates: start: 20180607
  17. THROMBO ASS [Concomitant]
     Active Substance: ASPIRIN
     Indication: PROPHYLAXIS
     Dosage: 100 MG, QD
     Route: 048
  18. ATROPIN [ATROPINE] [Concomitant]
     Indication: PROPHYLAXIS
     Dosage: 0.2 MG, 1X/DAY
     Route: 058
     Dates: start: 20180301
  19. DEXPANTHENOL. [Concomitant]
     Active Substance: DEXPANTHENOL
     Indication: OROPHARYNGEAL PAIN
     Dosage: 1 DF (SPOON), 1X/DAY
     Route: 048
     Dates: start: 20180215
  20. ONDANSETRON [Concomitant]
     Active Substance: ONDANSETRON
     Indication: PROPHYLAXIS
     Dosage: AS NEEDED
     Route: 048
     Dates: start: 20180122
  21. FORTECORTIN [DEXAMETHASONE] [Concomitant]
     Indication: PROPHYLAXIS
     Dosage: 12 MG, 1X/DAY
     Route: 042
     Dates: start: 20180301
  22. IRINOTECAN HCL [Suspect]
     Active Substance: IRINOTECAN HYDROCHLORIDE
     Dosage: 180 MG/M2, CYCLIC
     Route: 042
     Dates: start: 20171229, end: 20171229
  23. LEUCOVORIN [FOLINIC ACID] [Suspect]
     Active Substance: LEUCOVORIN
     Dosage: 400 MG/M2, QCY (CYCLIC)
     Route: 042
     Dates: start: 20180720, end: 20180720
  24. FLUOROURACIL. [Suspect]
     Active Substance: FLUOROURACIL
     Dosage: 2400 MG/M2, QCY  (CYCLIC)
     Route: 042
     Dates: start: 20171229, end: 20171229
  25. GLANDOMED [Concomitant]
     Indication: PROPHYLAXIS
     Dosage: 1 DF, DAILY
     Route: 048
     Dates: start: 20170604
  26. PANTOLOC [PANTOPRAZOLE] [Concomitant]
     Indication: GASTRITIS
     Dosage: 40 MG, QD
     Route: 048
  27. PASPERTIN E [Concomitant]
     Indication: PROPHYLAXIS
     Dosage: 10 MG, AS NEEDED
     Route: 048
     Dates: start: 20170518
  28. MAGNESIUM GLUCONICUM [Concomitant]
     Indication: HYPOMAGNESAEMIA
     Dosage: 10 ML, UNK
     Route: 042
     Dates: start: 20180621
  29. AFLIBERCEPT [Suspect]
     Active Substance: AFLIBERCEPT
     Indication: COLORECTAL CANCER METASTATIC
     Dosage: 4 MG/KG, QCY (CYCLIC)
     Route: 042
     Dates: start: 20171229, end: 20171229
  30. PARACETAMOL [Concomitant]
     Active Substance: ACETAMINOPHEN
     Indication: PROPHYLAXIS
     Dosage: 500 MG, PRN
     Route: 048
     Dates: start: 20170721
  31. MAGNESIUM ADIPATE/MAGNESIUM NICOTINATE [Concomitant]
     Indication: HYPOMAGNESAEMIA
     Dosage: 1 UNK, AS NEEDED
     Route: 042
     Dates: start: 20180621
  32. OLEOVIT?D3 [Concomitant]
     Indication: PROPHYLAXIS
     Dosage: 3 DF, WEEKLY
     Route: 048
     Dates: start: 20170714

REACTIONS (1)
  - General physical health deterioration [Recovered/Resolved]

NARRATIVE: CASE EVENT DATE: 20180803
